FAERS Safety Report 7987394-5 (Version None)
Quarter: 2011Q4

REPORT INFORMATION
  Report Type: 
  Country: None (occurrence: None)
  Receive Date: 20111216
  Receipt Date: 20110405
  Transmission Date: 20120403
  Serious: No
  Sender: FDA-Public Use
  Company Number: US-BRISTOL-MYERS SQUIBB COMPANY-15653918

PATIENT
  Age: 28 Year
  Sex: Female
  Weight: 63 kg

DRUGS (3)
  1. ABILIFY [Suspect]
     Dates: start: 20110319
  2. CYMBALTA [Concomitant]
  3. XANAX [Concomitant]

REACTIONS (2)
  - SOMNOLENCE [None]
  - INCREASED APPETITE [None]
